FAERS Safety Report 9126668 (Version 1)
Quarter: 2013Q1

REPORT INFORMATION
  Report Type: Spontaneous
  Country: GB (occurrence: GB)
  Receive Date: 20130117
  Receipt Date: 20130117
  Transmission Date: 20140127
  Serious: Yes (Other)
  Sender: FDA-Public Use
  Company Number: GB-BAYER-2013-004965

PATIENT
  Age: 49 Year
  Sex: Female

DRUGS (2)
  1. MIRENA [Suspect]
     Indication: CONTRACEPTION
     Dosage: 20 MCG/24HR, CONT
     Route: 015
     Dates: start: 201011
  2. MIRENA [Suspect]
     Indication: MENORRHAGIA

REACTIONS (5)
  - Psychotic disorder [None]
  - Depression suicidal [None]
  - Procedural pain [None]
  - Abdominal distension [None]
  - Abnormal weight gain [None]
